FAERS Safety Report 6963780-7 (Version None)
Quarter: 2010Q3

REPORT INFORMATION
  Report Type: 
  Country: None (occurrence: None)
  Receive Date: 20100902
  Receipt Date: 20100825
  Transmission Date: 20110219
  Serious: Yes (Other)
  Sender: FDA-Public Use
  Company Number: IN-WATSON-2010-11541

PATIENT
  Age: 72 Year
  Sex: Male

DRUGS (2)
  1. LIDOCAINE HCL [Suspect]
     Indication: LOCAL ANAESTHESIA
     Dosage: 0.5 ML, SINGLE
     Route: 021
  2. BUPIVACAINE HCL [Suspect]
     Indication: LOCAL ANAESTHESIA
     Dosage: 0.5 ML, SINGLE
     Route: 021

REACTIONS (4)
  - BLINDNESS [None]
  - CONJUNCTIVAL HAEMORRHAGE [None]
  - CORNEAL OEDEMA [None]
  - DRUG ADMINISTRATION ERROR [None]
